FAERS Safety Report 7449477-8 (Version None)
Quarter: 2011Q2

REPORT INFORMATION
  Report Type: 
  Country: None (occurrence: None)
  Receive Date: 20110502
  Receipt Date: 20110418
  Transmission Date: 20111010
  Serious: Yes (Hospitalization, Other)
  Sender: FDA-Public Use
  Company Number: AU-BAYER-2011-034313

PATIENT
  Age: 69 Year
  Sex: Male
  Weight: 91.5 kg

DRUGS (7)
  1. RIVAROXABAN [Interacting]
     Dosage: DOSAGE FORM: TABLET
     Route: 048
     Dates: start: 20091222, end: 20110210
  2. CLOPIDOGREL [Interacting]
     Indication: ACUTE CORONARY SYNDROME
  3. RIVAROXABAN [Interacting]
     Indication: ACUTE CORONARY SYNDROME
     Dosage: 2.5 MG OR 5 MG
     Route: 048
  4. NICORANDIL [Concomitant]
     Indication: ILL-DEFINED DISORDER
  5. ACETYLSALICYLIC ACID SRT [Interacting]
     Route: 048
     Dates: start: 20110302
  6. ACETYLSALICYLIC ACID SRT [Suspect]
     Indication: ACUTE CORONARY SYNDROME
     Route: 048
     Dates: end: 20110219
  7. RIVAROXABAN [Interacting]
     Dosage: 2.5 MG OR 5 MG
     Route: 048
     Dates: end: 20110407

REACTIONS (2)
  - ANGINA UNSTABLE [None]
  - POST PROCEDURAL HAEMORRHAGE [None]
